FAERS Safety Report 4427468-9 (Version None)
Quarter: 2004Q3

REPORT INFORMATION
  Report Type: 
  Country: None (occurrence: None)
  Receive Date: 20040816
  Receipt Date: 20040816
  Transmission Date: 20050211
  Serious: Yes (Other)
  Sender: FDA-Public Use
  Company Number: None

PATIENT
  Age: 40 Year
  Sex: Male
  Weight: 81.6475 kg

DRUGS (2)
  1. MYSOLINE [Suspect]
     Indication: CONVULSION
     Dosage: 250 MG 1 TAB AM 2 AT HS
  2. DILANTIN [Suspect]
     Dosage: 100 ML TAB AM 2 AT HS

REACTIONS (1)
  - FEELING ABNORMAL [None]
